FAERS Safety Report 5103218-8 (Version None)
Quarter: 2006Q3

REPORT INFORMATION
  Report Type: 
  Country: None (occurrence: None)
  Receive Date: 20060911
  Receipt Date: 20060911
  Transmission Date: 20061208
  Serious: Yes (Other)
  Sender: FDA-Public Use
  Company Number: None

PATIENT
  Age: 50 Year
  Sex: Female
  Weight: 114.3065 kg

DRUGS (2)
  1. WARFARIN SODIUM [Suspect]
     Indication: ATRIAL FLUTTER
     Dosage: 2 MG 1 PO QD
  2. WARFARIN SODIUM [Suspect]
     Indication: HEART VALVE REPLACEMENT
     Dosage: 2 MG 1 PO QD

REACTIONS (4)
  - INTERNATIONAL NORMALISED RATIO FLUCTUATION [None]
  - MENORRHAGIA [None]
  - PROTHROMBIN TIME PROLONGED [None]
  - THERAPEUTIC RESPONSE UNEXPECTED WITH DRUG SUBSTITUTION [None]
